FAERS Safety Report 10032298 (Version 2)
Quarter: 2014Q2

REPORT INFORMATION
  Report Type: Spontaneous
  Country: US (occurrence: US)
  Receive Date: 20140324
  Receipt Date: 20140604
  Transmission Date: 20141212
  Serious: Yes (Hospitalization, Other)
  Sender: FDA-Public Use
  Company Number: US-GILEAD-2014-0097483

PATIENT
  Age: 46 Year
  Sex: Female

DRUGS (2)
  1. LETAIRIS [Suspect]
     Indication: PULMONARY ARTERIAL HYPERTENSION
     Dosage: 5 MG, QD
     Route: 065
     Dates: start: 20120913
  2. LETAIRIS [Suspect]
     Indication: DRUG ABUSE
     Dosage: 10 UNK, UNK
     Route: 065

REACTIONS (3)
  - Ear infection [Unknown]
  - Sinusitis [Unknown]
  - Dyspnoea [Unknown]
